FAERS Safety Report 14234952 (Version 1)
Quarter: 2017Q4

REPORT INFORMATION
  Report Type: Spontaneous
  Country: US (occurrence: None)
  Receive Date: 20171128
  Receipt Date: 20171128
  Transmission Date: 20180321
  Serious: Yes (Death)
  Sender: FDA-Public Use
  Company Number: None

PATIENT
  Age: 16 Year
  Sex: Female

DRUGS (2)
  1. TEMOZOLOMIDE 100MG CAP [Suspect]
     Active Substance: TEMOZOLOMIDE
     Indication: BRAIN NEOPLASM MALIGNANT
     Dosage: 3 CAPSULES EOD X 5 BY MOUTH
     Route: 048
     Dates: start: 201710, end: 2017
  2. GLEOSTINE [Suspect]
     Active Substance: LOMUSTINE
     Dosage: 2 CAPSULES DAY 1 OF CYCLE BY MOUTH
     Dates: start: 201710, end: 2017

REACTIONS (1)
  - Death [None]
